FAERS Safety Report 8230564-1 (Version None)
Quarter: 2012Q1

REPORT INFORMATION
  Report Type: 
  Country: None (occurrence: None)
  Receive Date: 20120321
  Receipt Date: 20120314
  Transmission Date: 20120608
  Serious: Yes (Other)
  Sender: FDA-Public Use
  Company Number: ADR-2012-00003

PATIENT
  Sex: Female

DRUGS (2)
  1. BACLOFEN [Suspect]
     Indication: MUSCLE SPASTICITY
     Dosage: 440 MCG/DAY INTRATHECAL
     Route: 037
  2. BACLOFEN [Suspect]
     Indication: CEREBRAL PALSY
     Dosage: 440 MCG/DAY INTRATHECAL
     Route: 037

REACTIONS (3)
  - WITHDRAWAL SYNDROME [None]
  - IMPLANT SITE INFECTION [None]
  - STAPHYLOCOCCAL INFECTION [None]
